FAERS Safety Report 13672391 (Version 1)
Quarter: 2017Q2

REPORT INFORMATION
  Report Type: Spontaneous
  Country: US (occurrence: US)
  Receive Date: 20170620
  Receipt Date: 20170620
  Transmission Date: 20170830
  Serious: No
  Sender: FDA-Public Use
  Company Number: US-GLENMARK PHARMACEUTICALS-2017GMK027066

PATIENT

DRUGS (1)
  1. CALCIPOTRIENE CREAM 0.005% [Suspect]
     Active Substance: CALCIPOTRIENE
     Indication: DERMATITIS CONTACT
     Dosage: UNK, BID (ONCE IN MORNING AND ONCE IN NIGHT)
     Route: 061
     Dates: start: 20170315, end: 20170322

REACTIONS (7)
  - Skin lesion [Recovering/Resolving]
  - Application site pruritus [Recovering/Resolving]
  - Application site erythema [Recovering/Resolving]
  - Dry skin [Recovering/Resolving]
  - Application site swelling [Recovering/Resolving]
  - Off label use [Unknown]
  - Application site pain [Recovering/Resolving]

NARRATIVE: CASE EVENT DATE: 20170315
